FAERS Safety Report 10339602 (Version 2)
Quarter: 2014Q1

REPORT INFORMATION
  Report Type: Spontaneous
  Country: US (occurrence: None)
  Receive Date: 20120817
  Receipt Date: 20130815
  Transmission Date: 20141002
  Serious: Yes (Hospitalization, Other)
  Sender: FDA-Public Use
  Company Number: ADR-2012-00499

PATIENT
  Sex: Male

DRUGS (3)
  1. BACLOFEN INTRATHECAL (BACLOFEN INJECTION) 2000 MCG/ML [Suspect]
     Indication: MUSCLE SPASTICITY
  2. BACLOFEN INTRATHECAL (BACLOFEN INJECTION) 2000 MCG/ML [Suspect]
     Indication: MUSCLE SPASTICITY
  3. ^OTHER^ UNKNOWN MEDICATION [Concomitant]

REACTIONS (8)
  - Pain [None]
  - Fall [None]
  - Unevaluable event [None]
  - Hypertonia [None]
  - Depressed level of consciousness [None]
  - Chest pain [None]
  - Muscle spasms [None]
  - Dyspnoea [None]
